FAERS Safety Report 18728738 (Version 2)
Quarter: 2021Q1

REPORT INFORMATION
  Report Type: Spontaneous
  Country: US (occurrence: US)
  Receive Date: 20210112
  Receipt Date: 20210120
  Transmission Date: 20210419
  Serious: No
  Sender: FDA-Public Use
  Company Number: US-GW PHARMA-202012USGW04615

PATIENT

DRUGS (1)
  1. EPIDIOLEX [Suspect]
     Active Substance: CANNABIDIOL
     Indication: LENNOX-GASTAUT SYNDROME
     Dosage: 240 MILLIGRAM, BID (THEY ARE SWITCHING TO GIVING THE MEDICATION BY MOUTH NOW, INSTEAD OF G?TUBE)
     Dates: start: 202012

REACTIONS (1)
  - Medical device site irritation [Recovered/Resolved]

NARRATIVE: CASE EVENT DATE: 202012
